FAERS Safety Report 4519481-8 (Version None)
Quarter: 2004Q4

REPORT INFORMATION
  Report Type: 
  Country: None (occurrence: None)
  Receive Date: 20041202
  Receipt Date: 20041117
  Transmission Date: 20050328
  Serious: Yes (Disabling)
  Sender: FDA-Public Use
  Company Number: 2004SE06529

PATIENT
  Age: 59 Year
  Sex: Female
  Weight: 85 kg

DRUGS (4)
  1. ATACAND [Suspect]
     Indication: HYPERTENSION
     Dosage: 4 MG QD PO
     Route: 048
     Dates: start: 20041006, end: 20041006
  2. CENTYL [Concomitant]
  3. ORABET [Concomitant]
  4. SIMVASTATIN [Concomitant]

REACTIONS (7)
  - CHILLS [None]
  - COUGH [None]
  - DIZZINESS [None]
  - EYE HAEMORRHAGE [None]
  - EYE INFECTION [None]
  - HEADACHE [None]
  - MALAISE [None]
